FAERS Safety Report 9227696 (Version 1)
Quarter: 2013Q2

REPORT INFORMATION
  Report Type: Spontaneous
  Country: SE (occurrence: SE)
  Receive Date: 20130412
  Receipt Date: 20130412
  Transmission Date: 20140414
  Serious: Yes (Other)
  Sender: FDA-Public Use
  Company Number: SE-SANOFI-AVENTIS-2013SA036406

PATIENT
  Age: 49 Year
  Sex: Female

DRUGS (4)
  1. DOCETAXEL [Suspect]
     Indication: BREAST CANCER
     Route: 065
     Dates: start: 20101209, end: 20110323
  2. ALL OTHER THERAPEUTIC PRODUCTS [Suspect]
     Indication: BREAST CANCER
     Route: 065
     Dates: start: 20101209, end: 20110323
  3. AVASTIN [Concomitant]
  4. ZARZIO [Concomitant]

REACTIONS (2)
  - Cognitive disorder [Recovered/Resolved with Sequelae]
  - Fatigue [Recovered/Resolved with Sequelae]
